FAERS Safety Report 9513025 (Version 1)
Quarter: 2013Q3

REPORT INFORMATION
  Report Type: Spontaneous
  Country: US (occurrence: US)
  Receive Date: 20130910
  Receipt Date: 20130910
  Transmission Date: 20140515
  Serious: No
  Sender: FDA-Public Use
  Company Number: US-PFIZER INC-2013255920

PATIENT
  Sex: Male

DRUGS (2)
  1. EPLERENONE [Suspect]
     Dosage: 100 MG, 1X/DAY
  2. GABAPENTIN [Suspect]
     Indication: NEUROPATHY PERIPHERAL
     Dosage: UNK

REACTIONS (2)
  - Oedema peripheral [Unknown]
  - Weight increased [Unknown]
